FAERS Safety Report 20052226 (Version 2)
Quarter: 2021Q4

REPORT INFORMATION
  Report Type: Spontaneous
  Country: AR (occurrence: AR)
  Receive Date: 20211110
  Receipt Date: 20211115
  Transmission Date: 20220303
  Serious: Yes (Other)
  Sender: FDA-Public Use
  Company Number: AR-MYLANLABS-2021M1056161

PATIENT
  Age: 20 Year
  Sex: Male

DRUGS (7)
  1. CLOZAPINE [Suspect]
     Active Substance: CLOZAPINE
     Indication: Intellectual disability
     Dosage: 450 MILLIGRAM, QD
     Dates: start: 20180629, end: 20211104
  2. CLOZAPINE [Suspect]
     Active Substance: CLOZAPINE
     Indication: Psychotic disorder
  3. CLOZAPINE [Suspect]
     Active Substance: CLOZAPINE
     Indication: Illusion
  4. CLOZAPINE [Suspect]
     Active Substance: CLOZAPINE
     Indication: Delusion
  5. CLOZAPINE [Suspect]
     Active Substance: CLOZAPINE
     Indication: Sensory disturbance
  6. VALPROIC ACID [Concomitant]
     Active Substance: VALPROIC ACID
     Dosage: UNK
  7. BIPERIDEN [Concomitant]
     Active Substance: BIPERIDEN
     Dosage: UNK

REACTIONS (2)
  - Neutropenia [Not Recovered/Not Resolved]
  - Off label use [Recovered/Resolved]

NARRATIVE: CASE EVENT DATE: 20180629
